FAERS Safety Report 5517649-5 (Version None)
Quarter: 2007Q4

REPORT INFORMATION
  Report Type: 
  Country: None (occurrence: None)
  Receive Date: 20071114
  Receipt Date: 20071022
  Transmission Date: 20080405
  Serious: No
  Sender: FDA-Public Use
  Company Number: US-BOEHRINGER INGELHEIM PHARMACEUTICALS, INC.-2007-BP-07479BP

PATIENT
  Sex: Female

DRUGS (4)
  1. MIRAPEX [Suspect]
     Indication: PARKINSON'S DISEASE
     Route: 048
     Dates: start: 20070427
  2. ZOLOFT [Concomitant]
  3. NEUPRO [Concomitant]
  4. STALEVO 100 [Concomitant]

REACTIONS (2)
  - NIGHT BLINDNESS [None]
  - VISION BLURRED [None]
